FAERS Safety Report 10667464 (Version 1)
Quarter: 2014Q4

REPORT INFORMATION
  Report Type: Spontaneous
  Country: CH (occurrence: None)
  Receive Date: 20141218
  Receipt Date: 20141218
  Transmission Date: 20150529
  Serious: Yes (Hospitalization)
  Sender: FDA-Public Use
  Company Number: 2014SEB00058

PATIENT
  Age: 80 Year
  Sex: Female
  Weight: 65 kg

DRUGS (9)
  1. EUTHYROX (LEVOTHYROXINE SODIUM) [Concomitant]
  2. DIAMICRON (GLICLAZIDE) [Concomitant]
     Active Substance: GLICLAZIDE
  3. BELOC-ZOK (HYDROCHLOROTHIAZIDE, METOPROLOL SUCCINATE) [Concomitant]
  4. DILZEM [Suspect]
     Active Substance: DILTIAZEM
     Indication: ATRIAL FIBRILLATION
     Route: 048
     Dates: start: 20141009
  5. AUGMENTIN [Suspect]
     Active Substance: AMOXICILLIN\CLAVULANATE POTASSIUM
     Indication: PARONYCHIA
     Route: 048
     Dates: start: 20141016, end: 20141018
  6. COVERSUM (PERINDOPRIL ERBUMINE) [Concomitant]
  7. MIACALCIC [Suspect]
     Active Substance: CALCITONIN SALMON
     Indication: OSTEOPOROSIS
     Route: 045
     Dates: start: 20141015, end: 20141022
  8. CIPRALEX (ESCITALOPRAM) [Concomitant]
  9. XARELTO [Concomitant]
     Active Substance: RIVAROXABAN

REACTIONS (8)
  - Dermatitis [None]
  - Keratosis pilaris [None]
  - Rash pruritic [None]
  - Skin lesion [None]
  - Laceration [None]
  - Purpura [None]
  - Papule [None]
  - Skin atrophy [None]

NARRATIVE: CASE EVENT DATE: 20141018
